FAERS Safety Report 23977690 (Version 1)
Quarter: 2024Q2

REPORT INFORMATION
  Report Type: Spontaneous
  Country: US (occurrence: None)
  Receive Date: 20240614
  Receipt Date: 20240614
  Transmission Date: 20240715
  Serious: Yes (Life-Threatening, Hospitalization)
  Sender: FDA-Public Use
  Company Number: None

PATIENT
  Sex: Female

DRUGS (2)
  1. KISQALI [Suspect]
     Active Substance: RIBOCICLIB
     Indication: Breast cancer female
     Route: 048
     Dates: start: 202404
  2. KISQALI [Suspect]
     Active Substance: RIBOCICLIB
     Indication: Metastases to lung

REACTIONS (2)
  - Syncope [None]
  - Loss of consciousness [None]
